FAERS Safety Report 13849463 (Version 1)
Quarter: 2017Q3

REPORT INFORMATION
  Report Type: Report from Study
  Country: CN (occurrence: CN)
  Receive Date: 20170809
  Receipt Date: 20170809
  Transmission Date: 20171127
  Serious: Yes (Hospitalization)
  Sender: FDA-Public Use
  Company Number: PHHY2017CN115156

PATIENT
  Age: 28 Year
  Sex: Male

DRUGS (3)
  1. GLIVEC [Suspect]
     Active Substance: IMATINIB MESYLATE
     Indication: CHRONIC MYELOID LEUKAEMIA
     Dosage: 400 MG, QD
     Route: 048
     Dates: start: 20161214, end: 20170426
  2. NILOTINIB [Suspect]
     Active Substance: NILOTINIB
     Indication: CHRONIC MYELOID LEUKAEMIA
     Dosage: 800 MG, QD
     Route: 048
     Dates: start: 20170526, end: 20170606
  3. HIDROXICARBAMIDA [Concomitant]
     Indication: CHRONIC MYELOID LEUKAEMIA
     Dosage: UNK
     Route: 065
     Dates: start: 20161205, end: 20161214

REACTIONS (3)
  - Platelet count decreased [Not Recovered/Not Resolved]
  - Wrong technique in product usage process [Unknown]
  - Discomfort [Unknown]

NARRATIVE: CASE EVENT DATE: 201704
